FAERS Safety Report 11336825 (Version 1)
Quarter: 2015Q3

REPORT INFORMATION
  Report Type: Other
  Country: GB (occurrence: GB)
  Receive Date: 20150804
  Receipt Date: 20150804
  Transmission Date: 20151125
  Serious: Yes (Hospitalization)
  Sender: FDA-Public Use
  Company Number: GB-MYLANLABS-2015M1024964

PATIENT

DRUGS (5)
  1. AMOXICILLIN. [Concomitant]
     Active Substance: AMOXICILLIN
     Dosage: 500 MG, TID
     Route: 048
  2. CARBAMAZEPINE. [Suspect]
     Active Substance: CARBAMAZEPINE
     Indication: FACIAL PAIN
     Dosage: 200 MG, QID (200MG 4 TIMES A DAY 3 DAYS PRIOR TO ADMISSION. REDUCED TO 100MG THREE TIMES A DAY)
  3. PARACETAMOL [Concomitant]
     Active Substance: ACETAMINOPHEN
     Dosage: 1 G, QID (AS REQUIRED)
     Route: 048
  4. CELECOXIB. [Concomitant]
     Active Substance: CELECOXIB
     Dosage: 100 MG, QD (AS REQUIRED)
     Route: 048
  5. IBUPROFEN. [Concomitant]
     Active Substance: IBUPROFEN
     Dosage: 5 %, BID
     Route: 061

REACTIONS (4)
  - Gait disturbance [Recovered/Resolved]
  - Vertigo [Recovered/Resolved]
  - Condition aggravated [Recovered/Resolved]
  - Facial pain [Recovered/Resolved]
